FAERS Safety Report 16633658 (Version 1)
Quarter: 2019Q3

REPORT INFORMATION
  Report Type: Spontaneous
  Country: US (occurrence: US)
  Receive Date: 20190725
  Receipt Date: 20190725
  Transmission Date: 20191004
  Serious: No
  Sender: FDA-Public Use
  Company Number: US-BIOMARINAP-US-2019-124718

PATIENT
  Sex: Female

DRUGS (1)
  1. PALYNZIQ [Suspect]
     Active Substance: PEGVALIASE-PQPZ
     Indication: PRODUCT USED FOR UNKNOWN INDICATION
     Route: 065

REACTIONS (8)
  - Pyrexia [Unknown]
  - Musculoskeletal discomfort [Unknown]
  - Fall [Unknown]
  - Unhealthy diet [Unknown]
  - Vomiting [Unknown]
  - Muscle strain [Unknown]
  - Pain [Unknown]
  - Dysarthria [Unknown]
